FAERS Safety Report 9712796 (Version 1)
Quarter: 2013Q4

REPORT INFORMATION
  Report Type: Spontaneous
  Country: US (occurrence: US)
  Receive Date: 20131126
  Receipt Date: 20131126
  Transmission Date: 20140711
  Serious: No
  Sender: FDA-Public Use
  Company Number: US-BRISTOL-MYERS SQUIBB COMPANY-19237098

PATIENT
  Age: 60 Year
  Sex: Male

DRUGS (5)
  1. BYDUREON [Suspect]
  2. LANTUS [Suspect]
  3. NORVASC [Suspect]
  4. NOVOLIN [Suspect]
  5. CRESTOR [Suspect]

REACTIONS (2)
  - Local swelling [Recovered/Resolved]
  - Nausea [Recovered/Resolved]
